FAERS Safety Report 24444429 (Version 2)
Quarter: 2024Q4

REPORT INFORMATION
  Report Type: Report from Study
  Country: US (occurrence: US)
  Receive Date: 20241016
  Receipt Date: 20241017
  Transmission Date: 20250115
  Serious: No
  Sender: ROCHE
  Company Number: US-ROCHE-2797529

PATIENT
  Age: 76 Year
  Sex: Male

DRUGS (1)
  1. RITUXAN [Suspect]
     Active Substance: RITUXIMAB
     Indication: Congenital renal disorder
     Dosage: INFUSE 1000 MG DAY 1 AND DAY 15 EVERY 4 MONTHS?DATE OF SERVICE OF RITUXIMAB WAS 17/MAR/2021 AND 31/M
     Route: 042
     Dates: start: 20210317

REACTIONS (2)
  - Off label use [Unknown]
  - No adverse event [Unknown]
